FAERS Safety Report 18693933 (Version 1)
Quarter: 2020Q4

REPORT INFORMATION
  Report Type: Spontaneous
  Country: US (occurrence: US)
  Receive Date: 20201230
  Receipt Date: 20201230
  Transmission Date: 20210114
  Serious: Yes (Hospitalization)
  Sender: FDA-Public Use
  Company Number: None

PATIENT
  Age: 54 Year
  Sex: Male
  Weight: 51.44 kg

DRUGS (2)
  1. FUROSEMIDE (FUROSEMIDE 40MG TAB) [Suspect]
     Active Substance: FUROSEMIDE
     Indication: HEPATITIS C
     Route: 048
     Dates: start: 20200529, end: 20200628
  2. FUROSEMIDE (FUROSEMIDE 40MG TAB) [Suspect]
     Active Substance: FUROSEMIDE
     Indication: CIRRHOSIS ALCOHOLIC

REACTIONS (4)
  - Ascites [None]
  - Wrong schedule [None]
  - Fluid overload [None]
  - Oedema peripheral [None]

NARRATIVE: CASE EVENT DATE: 20200623
